FAERS Safety Report 24146486 (Version 1)
Quarter: 2024Q3

REPORT INFORMATION
  Report Type: Spontaneous
  Country: US (occurrence: None)
  Receive Date: 20240726
  Receipt Date: 20240726
  Transmission Date: 20241016
  Serious: No
  Sender: Public
  Company Number: None

PATIENT
  Sex: Female

DRUGS (8)
  1. AMBRISENTAN [Suspect]
     Active Substance: AMBRISENTAN
     Indication: Pulmonary arterial hypertension
     Dosage: FREQUENCY : DAILY;?
     Route: 048
  2. FUROSEMIDE [Concomitant]
     Active Substance: FUROSEMIDE
  3. POTASSIUM CHLORIDE [Concomitant]
     Active Substance: POTASSIUM CHLORIDE
  4. SPIRONOLACTONE [Concomitant]
     Active Substance: SPIRONOLACTONE
  5. OMEPRAZOLE [Concomitant]
     Active Substance: OMEPRAZOLE
  6. OMEGA-3-ACID ETHYL ESTERS [Concomitant]
     Active Substance: OMEGA-3-ACID ETHYL ESTERS
  7. GABAPENTIN [Concomitant]
     Active Substance: GABAPENTIN
  8. TADALAFIL [Concomitant]
     Active Substance: TADALAFIL

REACTIONS (1)
  - Surgery [None]
